FAERS Safety Report 4906314-0 (Version None)
Quarter: 2006Q1

REPORT INFORMATION
  Report Type: 
  Country: None (occurrence: None)
  Receive Date: 20060207
  Receipt Date: 20060126
  Transmission Date: 20060701
  Serious: Yes (Hospitalization)
  Sender: FDA-Public Use
  Company Number: PAR_0487_2006

PATIENT
  Age: 16 Year
  Sex: Male

DRUGS (4)
  1. IBUPROFEN [Suspect]
     Dosage: 400 MG TID PO
     Route: 048
  2. IBUPROFEN [Suspect]
     Dosage: 500 MG TID RC
     Route: 054
  3. AMOXICILLIN [Suspect]
     Dosage: 500 MG QID IV
     Route: 042
  4. AMOXICILLIN [Suspect]
     Dosage: 500 MG QID PO
     Route: 048

REACTIONS (5)
  - ABSCESS INTESTINAL [None]
  - CLOSTRIDIUM COLITIS [None]
  - HAEMOLYTIC ANAEMIA [None]
  - INTESTINAL ULCER [None]
  - THROMBOCYTOPENIA [None]
